FAERS Safety Report 11072335 (Version 3)
Quarter: 2015Q2

REPORT INFORMATION
  Report Type: Spontaneous
  Country: US (occurrence: US)
  Receive Date: 20150428
  Receipt Date: 20150616
  Transmission Date: 20150821
  Serious: No
  Sender: FDA-Public Use
  Company Number: US-009507513-1504USA023075

PATIENT
  Age: 41 Year
  Sex: Female
  Weight: 75.28 kg

DRUGS (3)
  1. FOLLITROPIN BETA [Concomitant]
     Active Substance: FOLLITROPIN
     Indication: INFERTILITY
     Dosage: 225 IU, QD
  2. FOLLISTIM [Suspect]
     Active Substance: FOLLITROPIN
     Dosage: 200 UNK, UNK
     Route: 058
     Dates: start: 20150429, end: 20150430
  3. FOLLISTIM [Suspect]
     Active Substance: FOLLITROPIN
     Indication: ASSISTED FERTILISATION
     Dosage: 225 DF, QD
     Route: 058
     Dates: start: 20150420, end: 20150428

REACTIONS (7)
  - Injection site haemorrhage [Recovered/Resolved]
  - Injection site pain [Recovered/Resolved]
  - Drug dose omission [Unknown]
  - Injection site haemorrhage [Recovered/Resolved]
  - Drug dose omission [Unknown]
  - Injection site pain [Recovered/Resolved]
  - Product quality issue [Unknown]

NARRATIVE: CASE EVENT DATE: 20150422
